FAERS Safety Report 10238507 (Version 2)
Quarter: 2015Q3

REPORT INFORMATION
  Report Type: Spontaneous
  Country: US (occurrence: US)
  Receive Date: 20140616
  Receipt Date: 20150716
  Transmission Date: 20151125
  Serious: Yes (Death, Other)
  Sender: FDA-Public Use
  Company Number: US-SA-2014SA077581

PATIENT

DRUGS (3)
  1. ECOTRIN [Concomitant]
     Active Substance: ASPIRIN
  2. ASPIRIN. [Concomitant]
     Active Substance: ASPIRIN
  3. PLAVIX [Suspect]
     Active Substance: CLOPIDOGREL BISULFATE
     Indication: PRODUCT USED FOR UNKNOWN INDICATION
     Route: 048
     Dates: start: 20050217, end: 200705

REACTIONS (4)
  - Gastrointestinal haemorrhage [Unknown]
  - Death [Fatal]
  - Multiple injuries [Unknown]
  - Epistaxis [Unknown]

NARRATIVE: CASE EVENT DATE: 2007
